FAERS Safety Report 21187085 (Version 3)
Quarter: 2022Q3

REPORT INFORMATION
  Report Type: Report from Study
  Country: CN (occurrence: None)
  Receive Date: 20220808
  Receipt Date: 20220824
  Transmission Date: 20221027
  Serious: Yes (Hospitalization)
  Sender: FDA-Public Use
  Company Number: 2022A273674

PATIENT
  Age: 55 Year
  Sex: Male

DRUGS (50)
  1. DURVALUMAB [Suspect]
     Active Substance: DURVALUMAB
     Indication: Oesophageal squamous cell carcinoma
     Route: 042
     Dates: start: 20220628, end: 20220628
  2. CAPECITABINE [Suspect]
     Active Substance: CAPECITABINE
     Indication: Oesophageal squamous cell carcinoma
     Route: 065
  3. CISPLATIN [Suspect]
     Active Substance: CISPLATIN
     Indication: Oesophageal squamous cell carcinoma
     Dosage: 30 MG/M2
     Route: 065
     Dates: start: 20220628, end: 20220628
  4. ORAL PROTEIN HYDROLYSATE [Concomitant]
     Indication: Nutritional supplementation
     Route: 048
     Dates: start: 20220627
  5. INTACTED PROTEIN ENTERAL NUTRITION POWDER [Concomitant]
     Indication: Nutritional supplementation
     Route: 048
     Dates: start: 20220627
  6. GLYCEROL ENEMA [Concomitant]
     Indication: Constipation
     Route: 061
     Dates: start: 20220628
  7. LACTULOSE [Concomitant]
     Active Substance: LACTULOSE
     Indication: Constipation
     Route: 048
     Dates: start: 20220628
  8. CIMETIDINE INJECTION [Concomitant]
     Indication: Gastric disorder
     Route: 042
     Dates: start: 20220628, end: 20220628
  9. DIPHENHYDRAMINE HYDROCHLORIDE/CROTAMITON [Concomitant]
     Indication: Hypersensitivity
     Route: 042
     Dates: start: 20220628, end: 20220628
  10. WATER SOLUBLE VITAMIN FOR INJECTION [Concomitant]
     Indication: Nutritional supplementation
     Dosage: 1.0 BOX DAILY
     Route: 042
     Dates: start: 20220628, end: 20220629
  11. WATER SOLUBLE VITAMIN FOR INJECTION [Concomitant]
     Indication: Nutritional supplementation
     Dosage: 1.0 BOX DAILY
     Route: 042
     Dates: start: 20220719, end: 20220719
  12. COMPOUND AMINO ACIDS INJECTION(18AA-VII) [Concomitant]
     Indication: Nutritional supplementation
     Route: 042
     Dates: start: 20220628, end: 20220629
  13. COMPOUND AMINO ACIDS INJECTION(18AA-VII) [Concomitant]
     Indication: Nutritional supplementation
     Route: 042
     Dates: start: 20220712, end: 20220712
  14. COMPOUND AMINO ACIDS INJECTION(18AA-VII) [Concomitant]
     Indication: Nutritional supplementation
     Route: 042
     Dates: start: 20220719, end: 20220719
  15. SODIUM BICARBONATE RINGER^S INJECTION [Concomitant]
     Indication: Nutritional supplementation
     Route: 042
     Dates: start: 20220628, end: 20220629
  16. SODIUM BICARBONATE RINGER^S INJECTION [Concomitant]
     Indication: Nutritional supplementation
     Route: 042
     Dates: start: 20220705, end: 20220705
  17. SODIUM BICARBONATE RINGER^S INJECTION [Concomitant]
     Indication: Nutritional supplementation
     Route: 042
     Dates: start: 20220712, end: 20220712
  18. SODIUM BICARBONATE RINGER^S INJECTION [Concomitant]
     Indication: Nutritional supplementation
     Route: 042
     Dates: start: 20220719, end: 20220719
  19. ALANYL GLUTAMINE INJECTION [Concomitant]
     Indication: Nutritional supplementation
     Route: 042
     Dates: start: 20220628, end: 20220629
  20. ALANYL GLUTAMINE INJECTION [Concomitant]
     Indication: Nutritional supplementation
     Route: 042
     Dates: start: 20220705, end: 20220705
  21. ALANYL GLUTAMINE INJECTION [Concomitant]
     Indication: Nutritional supplementation
     Route: 042
     Dates: start: 20220712, end: 20220712
  22. ALANYL GLUTAMINE INJECTION [Concomitant]
     Indication: Nutritional supplementation
     Route: 042
     Dates: start: 20220719, end: 20220719
  23. LONG CHAIN FAT EMULSION INJECTION (OO) [Concomitant]
     Indication: Nutritional supplementation
     Route: 042
     Dates: start: 20220628, end: 20220629
  24. LONG CHAIN FAT EMULSION INJECTION (OO) [Concomitant]
     Indication: Nutritional supplementation
     Route: 042
     Dates: start: 20220705, end: 20220705
  25. LONG CHAIN FAT EMULSION INJECTION (OO) [Concomitant]
     Indication: Nutritional supplementation
     Route: 042
     Dates: start: 20220712, end: 20220712
  26. LONG CHAIN FAT EMULSION INJECTION (OO) [Concomitant]
     Indication: Nutritional supplementation
     Route: 042
     Dates: start: 20220719, end: 20220719
  27. MONOAMMONIUM GLYCYRRHIZINATE AND CYSTEINE AND SODIUM CHLORIDE INJEC... [Concomitant]
     Indication: Liver transplant rejection
     Route: 042
     Dates: start: 20220628, end: 20220629
  28. MONOAMMONIUM GLYCYRRHIZINATE AND CYSTEINE AND SODIUM CHLORIDE INJEC... [Concomitant]
     Indication: Liver transplant rejection
     Route: 042
     Dates: start: 20220705, end: 20220705
  29. MONOAMMONIUM GLYCYRRHIZINATE AND CYSTEINE AND SODIUM CHLORIDE INJEC... [Concomitant]
     Indication: Liver transplant rejection
     Route: 042
     Dates: start: 20220711, end: 20220712
  30. MONOAMMONIUM GLYCYRRHIZINATE AND CYSTEINE AND SODIUM CHLORIDE INJEC... [Concomitant]
     Indication: Liver transplant rejection
     Route: 042
     Dates: start: 20220719, end: 20220719
  31. RABEPRAZOLE SODIUM [Concomitant]
     Active Substance: RABEPRAZOLE SODIUM
     Indication: Gastric disorder
     Route: 042
     Dates: start: 20220628, end: 20220629
  32. RABEPRAZOLE SODIUM [Concomitant]
     Active Substance: RABEPRAZOLE SODIUM
     Indication: Gastric disorder
     Route: 042
     Dates: start: 20220705, end: 20220705
  33. RABEPRAZOLE SODIUM [Concomitant]
     Active Substance: RABEPRAZOLE SODIUM
     Indication: Gastric disorder
     Route: 042
     Dates: start: 20220711, end: 20220712
  34. RABEPRAZOLE SODIUM [Concomitant]
     Active Substance: RABEPRAZOLE SODIUM
     Indication: Gastric disorder
     Route: 042
     Dates: start: 20220719, end: 20220719
  35. TROPISETRON HYDROCHLORIDE SOLUTION FOR INJECTION [Concomitant]
     Indication: Prophylaxis of nausea and vomiting
     Route: 042
     Dates: start: 20220628, end: 20220629
  36. TROPISETRON HYDROCHLORIDE SOLUTION FOR INJECTION [Concomitant]
     Indication: Prophylaxis of nausea and vomiting
     Route: 042
     Dates: start: 20220705, end: 20220705
  37. TROPISETRON HYDROCHLORIDE SOLUTION FOR INJECTION [Concomitant]
     Indication: Prophylaxis of nausea and vomiting
     Route: 042
     Dates: start: 20220711, end: 20220712
  38. TROPISETRON HYDROCHLORIDE SOLUTION FOR INJECTION [Concomitant]
     Indication: Prophylaxis of nausea and vomiting
     Route: 042
     Dates: start: 20220719, end: 20220719
  39. TORASEMIDE INJECTION [Concomitant]
     Indication: Polyuria
     Route: 042
     Dates: start: 20220628, end: 20220629
  40. TORASEMIDE INJECTION [Concomitant]
     Indication: Polyuria
     Route: 042
     Dates: start: 20220705, end: 20220705
  41. TORASEMIDE INJECTION [Concomitant]
     Indication: Polyuria
     Route: 042
     Dates: start: 20220711, end: 20220712
  42. TORASEMIDE INJECTION [Concomitant]
     Indication: Polyuria
     Route: 042
     Dates: start: 20220719, end: 20220719
  43. ALBUMIN HUMAN [Concomitant]
     Active Substance: ALBUMIN HUMAN
     Indication: Nutritional supplementation
     Route: 042
     Dates: start: 20220628, end: 20220629
  44. ALBUMIN HUMAN [Concomitant]
     Active Substance: ALBUMIN HUMAN
     Indication: Nutritional supplementation
     Route: 042
     Dates: start: 20220705, end: 20220705
  45. COMPOUND AMINO ACID INJECTION(20AA) [Concomitant]
     Indication: Nutritional supplementation
     Route: 042
     Dates: start: 20220705, end: 20220705
  46. ALBUMIN GRIFOLS(HUMAN ALBUMIN) [Concomitant]
     Indication: Nutritional supplementation
     Route: 042
     Dates: start: 20220711, end: 20220712
  47. ALBUMIN GRIFOLS(HUMAN ALBUMIN) [Concomitant]
     Indication: Nutritional supplementation
     Route: 042
     Dates: start: 20220719, end: 20220719
  48. VITAMINS [Concomitant]
     Active Substance: VITAMINS
     Indication: Nutritional supplementation
     Dosage: 1.0 BOTTLE DAILY
     Route: 042
     Dates: start: 20220712, end: 20220712
  49. ILAPRAZOLE SODIUM FOR INJECTION [Concomitant]
     Indication: Gastric disorder
     Route: 042
     Dates: start: 20220719, end: 20220719
  50. LONG CHAIN FAT EMULSION INJECTION [Concomitant]
     Indication: Nutritional supplementation
     Dates: start: 20220705, end: 20220705

REACTIONS (1)
  - Platelet count decreased [Recovered/Resolved]

NARRATIVE: CASE EVENT DATE: 20220720
